FAERS Safety Report 6596873-7 (Version None)
Quarter: 2010Q1

REPORT INFORMATION
  Report Type: 
  Country: None (occurrence: None)
  Receive Date: 20100212
  Receipt Date: 20100203
  Transmission Date: 20100710
  Serious: Yes (Other)
  Sender: FDA-Public Use
  Company Number: 2010SP000847

PATIENT
  Age: 41 Year
  Sex: Female
  Weight: 88.2246 kg

DRUGS (1)
  1. IMPLANON [Suspect]
     Indication: CONTRACEPTION
     Dosage: 1 DF; SC
     Route: 058
     Dates: start: 20090818, end: 20091229

REACTIONS (2)
  - HEADACHE [None]
  - HYPOAESTHESIA [None]
